FAERS Safety Report 19973665 (Version 1)
Quarter: 2021Q4

REPORT INFORMATION
  Report Type: Spontaneous
  Country: US (occurrence: US)
  Receive Date: 20211020
  Receipt Date: 20211020
  Transmission Date: 20220303
  Serious: Yes (Hospitalization, Other)
  Sender: FDA-Public Use
  Company Number: US-BRISTOL-MYERS SQUIBB COMPANY-BMS-2021-108019

PATIENT
  Age: 73 Year
  Sex: Female
  Weight: 86.62 kg

DRUGS (1)
  1. ELIQUIS [Suspect]
     Active Substance: APIXABAN
     Indication: Cerebrovascular accident prophylaxis
     Dosage: 5 MILLIGRAM, BID
     Route: 048
     Dates: start: 202102, end: 202108

REACTIONS (7)
  - Atrial fibrillation [Recovered/Resolved]
  - Thrombocytopenia [Unknown]
  - Basal ganglia haemorrhage [Unknown]
  - Acute kidney injury [Unknown]
  - International normalised ratio increased [Unknown]
  - Peripheral T-cell lymphoma unspecified [Unknown]
  - Epistaxis [Unknown]

NARRATIVE: CASE EVENT DATE: 20210322
